FAERS Safety Report 5382529-5 (Version None)
Quarter: 2007Q3

REPORT INFORMATION
  Report Type: 
  Country: None (occurrence: None)
  Receive Date: 20070710
  Receipt Date: 20070703
  Transmission Date: 20080115
  Serious: Yes (Other)
  Sender: FDA-Public Use
  Company Number: US-ASTRAZENECA-2007UW15663

PATIENT
  Age: 53 Year

DRUGS (5)
  1. ARIMIDEX [Suspect]
     Indication: BREAST CANCER FEMALE
     Route: 048
     Dates: start: 20020101
  2. SYNTHROID [Concomitant]
     Indication: THYROID DISORDER
     Route: 048
     Dates: start: 19930101
  3. DEMEROL [Concomitant]
     Indication: PAIN
     Route: 048
     Dates: start: 20020101
  4. GRAVOL TAB [Concomitant]
     Route: 048
     Dates: start: 20020101
  5. CLONAZEPAM [Concomitant]
     Indication: PANIC ATTACK
     Route: 048
     Dates: start: 20030101

REACTIONS (9)
  - ABDOMINAL DISTENSION [None]
  - ANOREXIA [None]
  - BONE PAIN [None]
  - FALL [None]
  - FATIGUE [None]
  - LOSS OF LIBIDO [None]
  - MENTAL IMPAIRMENT [None]
  - PANIC ATTACK [None]
  - TOOTH EROSION [None]
